FAERS Safety Report 5051702-8 (Version None)
Quarter: 2006Q3

REPORT INFORMATION
  Report Type: 
  Country: None (occurrence: None)
  Receive Date: 20060711
  Receipt Date: 20060619
  Transmission Date: 20061208
  Serious: Yes (Hospitalization)
  Sender: FDA-Public Use
  Company Number: US200606004386

PATIENT
  Age: 68 Year
  Sex: Female
  Weight: 61.2 kg

DRUGS (6)
  1. HUMALOG MIX 75/25 [Suspect]
     Indication: DIABETES MELLITUS
     Dosage: SEE IMAGE
  2. HUMALOG MIX [Concomitant]
  3. DIURETICS [Concomitant]
  4. TOPROL-XL [Concomitant]
  5. NORVASC [Concomitant]
  6. POTASSIUM [Concomitant]

REACTIONS (6)
  - BLOOD GLUCOSE FLUCTUATION [None]
  - MEDICAL DEVICE COMPLICATION [None]
  - PAIN IN EXTREMITY [None]
  - PNEUMONIA [None]
  - SCIATICA [None]
  - WRONG TECHNIQUE IN DRUG USAGE PROCESS [None]
